FAERS Safety Report 9793927 (Version 3)
Quarter: 2014Q1

REPORT INFORMATION
  Report Type: Spontaneous
  Country: US (occurrence: US)
  Receive Date: 20140102
  Receipt Date: 20140225
  Transmission Date: 20141002
  Serious: No
  Sender: FDA-Public Use
  Company Number: US-AMGEN-USASP2013090071

PATIENT
  Age: 80 Year
  Sex: Female
  Weight: 54.42 kg

DRUGS (18)
  1. ENBREL [Suspect]
     Indication: RHEUMATOID ARTHRITIS
     Dosage: 50 MG, QWK
     Route: 058
     Dates: start: 20131105
  2. PLAQUENIL                          /00072602/ [Concomitant]
     Dosage: 200 MG, QD
     Route: 048
  3. PREDNISONE [Concomitant]
     Dosage: 5 MG, 2 QOD X 1 WEEK
     Route: 048
  4. PREDNISONE [Concomitant]
     Dosage: 1.5 QOD X 1 WEEK
  5. PREDNISONE [Concomitant]
     Dosage: 1 QOD UNTIL F/U
  6. METHOTREXATE                       /00113802/ [Concomitant]
     Dosage: 25 MG, QWK ON SAME DAY EACH WEEK
     Route: 058
  7. ZOLOFT [Concomitant]
     Dosage: 50 MG, QD
     Route: 048
  8. TRAMADOL [Concomitant]
     Dosage: 50 MG, TID AS NEEDED
     Route: 048
  9. MAGNESIUM [Concomitant]
     Dosage: 250 MG, UNK
  10. LIPITOR [Concomitant]
     Dosage: 20 MG, QD
     Route: 048
  11. CALCIUM [Concomitant]
     Dosage: 600 MG, QD
  12. CYSTEX                             /01492901/ [Concomitant]
     Dosage: 162 MG - 162.5 MG, UNK
  13. ASPIRIN [Concomitant]
     Dosage: 81 MG, QD
     Route: 048
  14. ZYRTEC [Concomitant]
     Dosage: 10 MG, QD
     Route: 048
  15. CO Q-10 [Concomitant]
     Dosage: 100 MG, QD, 2 CAP
     Route: 048
  16. TYLENOL EXTRA STRENGTH [Concomitant]
     Dosage: 500 MG, Q6H AS NEEDED
  17. VITAMIN D3 [Concomitant]
     Dosage: 10000 UNIT, QD
     Route: 048
  18. INSULIN [Concomitant]
     Dosage: 0.4 ML, QWK
     Route: 058

REACTIONS (3)
  - Hot flush [Not Recovered/Not Resolved]
  - Headache [Not Recovered/Not Resolved]
  - Feeling cold [Not Recovered/Not Resolved]
